FAERS Safety Report 7295066-8 (Version None)
Quarter: 2011Q1

REPORT INFORMATION
  Report Type: 
  Country: None (occurrence: None)
  Receive Date: 20110216
  Receipt Date: 20110208
  Transmission Date: 20110831
  Serious: Yes (Other)
  Sender: FDA-Public Use
  Company Number: US-JNJFOC-20101105140

PATIENT
  Sex: Female
  Weight: 53.52 kg

DRUGS (6)
  1. QVAR 40 [Concomitant]
     Indication: ASTHMA
     Dosage: 2 BID
     Route: 065
  2. QUASENSE [Concomitant]
     Indication: CONTRACEPTION
     Dosage: 0.15-30 DAILY
  3. ALLEGRA [Concomitant]
     Indication: MULTIPLE ALLERGIES
  4. REMICADE [Suspect]
     Indication: CROHN'S DISEASE
     Route: 042
  5. SEREVENT [Concomitant]
     Indication: ASTHMA
     Route: 065
  6. PROAIR HFA [Concomitant]
     Indication: ASTHMA
     Dosage: 2 PUFFS PRN

REACTIONS (2)
  - BLOOD POTASSIUM DECREASED [None]
  - ASTHMA [None]
